FAERS Safety Report 7668273-X (Version None)
Quarter: 2011Q3

REPORT INFORMATION
  Report Type: 
  Country: None (occurrence: None)
  Receive Date: 20110808
  Receipt Date: 20110725
  Transmission Date: 20111222
  Serious: Yes (Other)
  Sender: FDA-Public Use
  Company Number: JP-MYLANLABS-2011S1015448

PATIENT
  Age: 45 Year
  Sex: Female

DRUGS (2)
  1. CYCLOPHOSPHAMIDE [Suspect]
     Indication: BREAST CANCER
     Route: 041
     Dates: start: 20110406
  2. EPIRUBICIN [Suspect]
     Indication: BREAST CANCER
     Route: 041
     Dates: start: 20110406

REACTIONS (2)
  - HYPOAESTHESIA [None]
  - PAIN [None]
